FAERS Safety Report 9369905 (Version 1)
Quarter: 2013Q2

REPORT INFORMATION
  Report Type: Spontaneous
  Country: US (occurrence: None)
  Receive Date: 20130625
  Receipt Date: 20130625
  Transmission Date: 20140414
  Serious: Yes (Hospitalization)
  Sender: FDA-Public Use
  Company Number: None

PATIENT
  Age: 76 Year
  Sex: Male
  Weight: 93.7 kg

DRUGS (3)
  1. LISINOPRIL [Suspect]
     Indication: HYPERTENSION
     Route: 048
     Dates: start: 20040702, end: 20130218
  2. LISINOPRIL [Suspect]
     Indication: RENAL FAILURE CHRONIC
     Route: 048
     Dates: start: 20040702, end: 20130218
  3. ALLOPURINOL [Suspect]
     Indication: GOUT
     Route: 048
     Dates: start: 20130201, end: 20130218

REACTIONS (2)
  - Hypoaesthesia oral [None]
  - Angioedema [None]
